FAERS Safety Report 5852976-3 (Version None)
Quarter: 2008Q3

REPORT INFORMATION
  Report Type: 
  Country: None (occurrence: None)
  Receive Date: 20080821
  Receipt Date: 20080812
  Transmission Date: 20090109
  Serious: Yes (Other)
  Sender: FDA-Public Use
  Company Number: US-JNJFOC-20080803171

PATIENT
  Age: 30 Year
  Sex: Male
  Weight: 68.95 kg

DRUGS (6)
  1. IMODIUM [Suspect]
     Route: 048
  2. IMODIUM [Suspect]
     Indication: DIARRHOEA
     Route: 048
  3. PHENOBARBITAL TAB [Concomitant]
     Indication: CONVULSION
  4. TEGRETOL [Concomitant]
     Indication: CONVULSION
  5. KLONOPIN [Concomitant]
     Indication: ANXIETY
  6. LOMOTIL [Concomitant]
     Indication: CROHN'S DISEASE

REACTIONS (4)
  - DYSPNOEA [None]
  - INTENTIONAL DRUG MISUSE [None]
  - OVERDOSE [None]
  - WHEEZING [None]
